FAERS Safety Report 19795593 (Version 1)
Quarter: 2021Q3

REPORT INFORMATION
  Report Type: Spontaneous
  Country: US (occurrence: US)
  Receive Date: 20210903
  Receipt Date: 20210903
  Transmission Date: 20211014
  Serious: Yes (Other)
  Sender: FDA-Public Use
  Company Number: None

PATIENT
  Age: 63 Year
  Sex: Male
  Weight: 81 kg

DRUGS (7)
  1. ASPIRIN. [Concomitant]
     Active Substance: ASPIRIN
  2. TRAMADOL. [Concomitant]
     Active Substance: TRAMADOL
  3. FYCOMPA [Suspect]
     Active Substance: PERAMPANEL
     Indication: SEIZURE
     Dosage: ?          QUANTITY:1 TABLET(S);?
     Route: 048
  4. FYCOMPA [Concomitant]
     Active Substance: PERAMPANEL
  5. TELMISARTAN. [Concomitant]
     Active Substance: TELMISARTAN
  6. METHACARBAMOL [Concomitant]
     Active Substance: METHOCARBAMOL
  7. ATRVRSTATIN [Concomitant]

REACTIONS (3)
  - Aggression [None]
  - Loss of consciousness [None]
  - Amnesia [None]

NARRATIVE: CASE EVENT DATE: 20210827
